FAERS Safety Report 7120077-2 (Version None)
Quarter: 2010Q4

REPORT INFORMATION
  Report Type: 
  Country: None (occurrence: None)
  Receive Date: 20101123
  Receipt Date: 20101116
  Transmission Date: 20110411
  Serious: Yes (Hospitalization)
  Sender: FDA-Public Use
  Company Number: GXBR2010US01961

PATIENT
  Sex: Female

DRUGS (13)
  1. METHOTREXATE SODIUM [Suspect]
     Indication: RHEUMATOID ARTHRITIS
     Dosage: 15 MG, QW
     Route: 058
  2. ORENCIA [Suspect]
     Indication: RHEUMATOID ARTHRITIS
     Dosage: UNK MG, QMO
     Route: 042
  3. DILANTIN [Suspect]
     Indication: CONVULSION
     Dosage: 100MG QAM, 300MG QPM
  4. ACETAMINOPHEN [Suspect]
     Dosage: 650MG Q6H PRN
  5. CYMBALTA [Concomitant]
     Indication: DEPRESSION
     Dosage: 90 MG, QD
  6. FOLIC ACID [Concomitant]
     Indication: RHEUMATOID ARTHRITIS
     Dosage: 2 MG, QD
  7. LORTAB [Concomitant]
     Dosage: 7.5/500MG TID
  8. LYRICA [Concomitant]
     Dosage: 50 MG, BID
  9. TAMBOCOR [Concomitant]
     Indication: ATRIAL FLUTTER
     Dosage: 75 MG, BID
  10. METOPROLOL SUCCINATE [Concomitant]
     Dosage: 100 MG, QD
  11. CLONAZEPAM [Concomitant]
     Indication: ANXIETY
     Dosage: 1MG QHS PRN
  12. IMITREX ^GLAXO WELLCOME^ [Concomitant]
     Dosage: 25MG QD PRN
  13. MULTI-VITAMINS [Concomitant]
     Dosage: UNK

REACTIONS (13)
  - ABDOMINAL PAIN UPPER [None]
  - CHILLS [None]
  - CHROMATURIA [None]
  - DECREASED APPETITE [None]
  - DIARRHOEA [None]
  - FAECES PALE [None]
  - HEPATITIS ACUTE [None]
  - NAUSEA [None]
  - PRURITUS [None]
  - PYREXIA [None]
  - RASH [None]
  - STASIS SYNDROME [None]
  - VOMITING [None]
